FAERS Safety Report 17577029 (Version 1)
Quarter: 2020Q1

REPORT INFORMATION
  Report Type: Spontaneous
  Country: US (occurrence: US)
  Receive Date: 20200319
  Receipt Date: 20200319
  Transmission Date: 20200409
  Serious: Yes (Hospitalization)
  Sender: FDA-Public Use
  Company Number: None

PATIENT
  Age: 69 Year
  Sex: Male

DRUGS (1)
  1. GLEOSTINE [Suspect]
     Active Substance: LOMUSTINE
     Route: 048
     Dates: start: 20200117

REACTIONS (3)
  - Pharyngeal hypoaesthesia [None]
  - Speech disorder [None]
  - Hypoaesthesia [None]

NARRATIVE: CASE EVENT DATE: 20200228
